FAERS Safety Report 5361833-0 (Version None)
Quarter: 2007Q2

REPORT INFORMATION
  Report Type: 
  Country: None (occurrence: None)
  Receive Date: 20070530
  Receipt Date: 20070103
  Transmission Date: 20071010
  Serious: No
  Sender: FDA-Public Use
  Company Number: 2006PV027476

PATIENT
  Age: 53 Year
  Sex: Male
  Weight: 88.4514 kg

DRUGS (4)
  1. BYETTA [Suspect]
     Indication: INSULIN RESISTANCE
     Dosage: 10 MCG;BID;SC, 5 MCG;BID;SC
     Route: 058
     Dates: start: 20061026, end: 20061124
  2. BYETTA [Suspect]
     Indication: INSULIN RESISTANCE
     Dosage: 10 MCG;BID;SC, 5 MCG;BID;SC
     Route: 058
     Dates: start: 20061125
  3. METFORMIN HCL [Concomitant]
  4. TRICOR [Concomitant]

REACTIONS (3)
  - DECREASED APPETITE [None]
  - NAUSEA [None]
  - WEIGHT DECREASED [None]
